FAERS Safety Report 20925534 (Version 1)
Quarter: 2022Q2

REPORT INFORMATION
  Report Type: Spontaneous
  Country: JP (occurrence: JP)
  Receive Date: 20220607
  Receipt Date: 20220607
  Transmission Date: 20220721
  Serious: Yes (Other)
  Sender: FDA-Public Use
  Company Number: JP-UCBJ-CD202204610UCBPHAPROD

PATIENT
  Age: 16 Year
  Sex: Male
  Weight: 58.2 kg

DRUGS (21)
  1. LEVETIRACETAM [Suspect]
     Active Substance: LEVETIRACETAM
     Indication: Status epilepticus
     Dosage: UNK
     Route: 048
  2. LEVETIRACETAM [Suspect]
     Active Substance: LEVETIRACETAM
     Indication: Off label use
  3. VIMPAT [Suspect]
     Active Substance: LACOSAMIDE
     Indication: Status epilepticus
     Dosage: 200 MILLIGRAM, ONCE DAILY (QD)
     Route: 048
  4. VIMPAT [Suspect]
     Active Substance: LACOSAMIDE
     Indication: Off label use
  5. DIAZEPAM [Concomitant]
     Active Substance: DIAZEPAM
     Indication: Seizure
     Route: 065
  6. FOSPHENYTOIN SODIUM HEPTAHYDRATE [Concomitant]
     Active Substance: FOSPHENYTOIN SODIUM HEPTAHYDRATE
     Indication: Seizure
     Dosage: UNK
  7. MIDAZOLAM [Suspect]
     Active Substance: MIDAZOLAM
     Indication: Seizure
     Dosage: UNK
  8. PROPOFOL [Suspect]
     Active Substance: PROPOFOL
     Indication: Seizure
     Dosage: UNK
  9. THIAMYLAL [Suspect]
     Active Substance: THIAMYLAL
     Indication: Seizure
     Dosage: UNK
  10. METHYLPREDNISOLONE [Suspect]
     Active Substance: METHYLPREDNISOLONE
     Indication: Seizure
     Dosage: 1000 MG/DAY FOR 5 DAYS AND 3 CYCLES
  11. HUMAN IMMUNOGLOBULIN G [Suspect]
     Active Substance: HUMAN IMMUNOGLOBULIN G
     Indication: Seizure
     Dosage: 0.4 G/KG/DAY FOR 5 DAYS
  12. EDARAVONE [Suspect]
     Active Substance: EDARAVONE
     Indication: Seizure
     Dosage: UNK
  13. THIOPENTAL [Suspect]
     Active Substance: THIOPENTAL
     Indication: Seizure
     Dosage: UNK
  14. PHENOBARBITAL [Suspect]
     Active Substance: PHENOBARBITAL
     Indication: Seizure
     Dosage: UNK
  15. PHENOBARBITAL [Suspect]
     Active Substance: PHENOBARBITAL
     Dosage: 12 MG/KG/DAY
  16. KETAMINE [Suspect]
     Active Substance: KETAMINE
     Indication: Seizure
     Dosage: UNK
  17. KETAMINE [Suspect]
     Active Substance: KETAMINE
     Dosage: 5 MG/KG/H
  18. DEXAMETHASONE [Suspect]
     Active Substance: DEXAMETHASONE
     Indication: Seizure
     Dosage: ONE COURSE OF INTRATHECAL
  19. PERAMPANEL [Suspect]
     Active Substance: PERAMPANEL
     Indication: Seizure
     Dosage: 4 MILLIGRAM
  20. VALPROATE [Suspect]
     Active Substance: VALPROIC ACID
     Indication: Seizure
     Dosage: 1200 MILLIGRAM
  21. CLONAZEPAM [Suspect]
     Active Substance: CLONAZEPAM
     Indication: Seizure
     Dosage: 3 MILLIGRAM

REACTIONS (5)
  - Clonic convulsion [Unknown]
  - Seizure [Recovering/Resolving]
  - Partial seizures [Recovering/Resolving]
  - Multiple-drug resistance [Unknown]
  - Off label use [Unknown]
